FAERS Safety Report 5000967-7 (Version None)
Quarter: 2006Q2

REPORT INFORMATION
  Report Type: 
  Country: None (occurrence: None)
  Receive Date: 20060512
  Receipt Date: 20060502
  Transmission Date: 20061013
  Serious: Yes (Hospitalization)
  Sender: FDA-Public Use
  Company Number: US-ROCHE-446772

PATIENT
  Age: 43 Year
  Sex: Female

DRUGS (2)
  1. PEGASYS [Suspect]
     Dosage: ROUTE REPORTED AS INJECTABLE.
     Route: 050
     Dates: start: 20060401
  2. COPEGUS [Suspect]
     Dosage: REPORTED AS 2 AM AND 2 PM.
     Route: 048
     Dates: start: 20060401

REACTIONS (5)
  - COLD SWEAT [None]
  - DIZZINESS [None]
  - FACE INJURY [None]
  - FALL [None]
  - FATIGUE [None]
